FAERS Safety Report 19087334 (Version 1)
Quarter: 2021Q2

REPORT INFORMATION
  Report Type: Spontaneous
  Country: HU (occurrence: HU)
  Receive Date: 20210402
  Receipt Date: 20210402
  Transmission Date: 20210717
  Serious: Yes (Death, Hospitalization, Other)
  Sender: FDA-Public Use
  Company Number: HU-INCYTE CORPORATION-2020IN013351

PATIENT

DRUGS (4)
  1. ANTIDOLORICA [Concomitant]
     Indication: PRODUCT USED FOR UNKNOWN INDICATION
     Dosage: UNK
     Route: 065
  2. JAKAVI [Suspect]
     Active Substance: RUXOLITINIB
     Indication: MYELOFIBROSIS
     Dosage: UNK
     Route: 065
     Dates: start: 201605
  3. ASA [Suspect]
     Active Substance: ASPIRIN
     Indication: PRODUCT USED FOR UNKNOWN INDICATION
     Dosage: UNK
     Route: 065
     Dates: start: 2019
  4. LITALIR [Concomitant]
     Active Substance: HYDROXYUREA
     Indication: PRODUCT USED FOR UNKNOWN INDICATION
     Dosage: UNK
     Route: 065
     Dates: start: 2007

REACTIONS (17)
  - Herpes zoster [Unknown]
  - Anaemia [Unknown]
  - Cachexia [Recovered/Resolved]
  - Weight increased [Unknown]
  - Chest pain [Unknown]
  - Drug abuse [Unknown]
  - Post herpetic neuralgia [Unknown]
  - Splenic infarction [Unknown]
  - Leukocytosis [Unknown]
  - Haematochezia [Unknown]
  - Blood disorder [Unknown]
  - Gastrointestinal haemorrhage [Unknown]
  - Reticulocytosis [Unknown]
  - Thrombocytosis [Unknown]
  - Cerebral haemorrhage [Fatal]
  - Erosive oesophagitis [Unknown]
  - Altered state of consciousness [Unknown]

NARRATIVE: CASE EVENT DATE: 2016
